FAERS Safety Report 23575572 (Version 1)
Quarter: 2024Q1

REPORT INFORMATION
  Report Type: Spontaneous
  Country: NL (occurrence: NL)
  Receive Date: 20240228
  Receipt Date: 20240228
  Transmission Date: 20240410
  Serious: Yes (Other)
  Sender: FDA-Public Use
  Company Number: None

PATIENT
  Age: 34 Year
  Sex: Male
  Weight: 82 kg

DRUGS (1)
  1. LEVOFLOXACIN [Suspect]
     Active Substance: LEVOFLOXACIN
     Indication: Epididymitis
     Dosage: 1 PIL/ BRAND NAME NOT SPECIFIED
     Route: 065
     Dates: start: 20230909, end: 20230909

REACTIONS (4)
  - Hallucination [Unknown]
  - Nausea [Unknown]
  - Neuropathy peripheral [Recovered/Resolved]
  - Headache [Unknown]
